FAERS Safety Report 23677271 (Version 1)
Quarter: 2024Q1

REPORT INFORMATION
  Report Type: Spontaneous
  Country: US (occurrence: US)
  Receive Date: 20240327
  Receipt Date: 20240327
  Transmission Date: 20240410
  Serious: No
  Sender: FDA-Public Use
  Company Number: US-UNITED THERAPEUTICS-UNT-2023-035415

PATIENT
  Sex: Female

DRUGS (13)
  1. REMODULIN [Suspect]
     Active Substance: TREPROSTINIL
     Indication: Pulmonary arterial hypertension
     Dosage: 0.052 ?G/KG, CONTINUING
     Route: 041
     Dates: start: 2023
  2. REMODULIN [Suspect]
     Active Substance: TREPROSTINIL
     Dosage: 0.042 ?G/KG, CONTINUING
     Route: 041
     Dates: start: 2023
  3. REMODULIN [Suspect]
     Active Substance: TREPROSTINIL
     Dosage: 0.046 ?G/KG, CONTINUING
     Route: 041
  4. REMODULIN [Suspect]
     Active Substance: TREPROSTINIL
     Dosage: 0.048 ?G/KG, CONTINUING
     Route: 041
  5. REMODULIN [Suspect]
     Active Substance: TREPROSTINIL
     Dosage: UNK, CONTINUING
     Route: 041
     Dates: start: 202307
  6. OFEV [Concomitant]
     Active Substance: NINTEDANIB
     Indication: Interstitial lung disease
     Dosage: 200 MG, Q12H (1 IN 12 HOURS)
     Route: 048
     Dates: start: 202210
  7. OFEV [Concomitant]
     Active Substance: NINTEDANIB
     Indication: Pulmonary hypertension
     Dosage: 150 MG, QD (1 IN 1 DAY)
     Route: 048
     Dates: start: 20221110, end: 20221229
  8. OFEV [Concomitant]
     Active Substance: NINTEDANIB
     Indication: Idiopathic pulmonary fibrosis
     Dosage: 150 MG, Q12H (1 EVERY 12 HOUR)
     Route: 048
     Dates: start: 20221027
  9. OFEV [Concomitant]
     Active Substance: NINTEDANIB
     Dosage: UNK
     Route: 048
  10. OFEV [Concomitant]
     Active Substance: NINTEDANIB
     Dosage: UNK
     Route: 048
  11. OFEV [Concomitant]
     Active Substance: NINTEDANIB
     Dosage: UNK
     Route: 048
  12. OFEV [Concomitant]
     Active Substance: NINTEDANIB
     Dosage: UNK
     Route: 048
  13. OFEV [Concomitant]
     Active Substance: NINTEDANIB
     Dosage: UNK
     Route: 048

REACTIONS (5)
  - Diarrhoea [Unknown]
  - Nausea [Unknown]
  - Vomiting [Unknown]
  - Decreased appetite [Not Recovered/Not Resolved]
  - Condition aggravated [Unknown]

NARRATIVE: CASE EVENT DATE: 20230101
